FAERS Safety Report 19021949 (Version 1)
Quarter: 2021Q1

REPORT INFORMATION
  Report Type: Spontaneous
  Country: US (occurrence: US)
  Receive Date: 20210317
  Receipt Date: 20210317
  Transmission Date: 20210420
  Serious: No
  Sender: FDA-Public Use
  Company Number: US-SUNOVION-2021SUN000808

PATIENT
  Sex: Male
  Weight: 72 kg

DRUGS (6)
  1. LATUDA [Suspect]
     Active Substance: LURASIDONE HYDROCHLORIDE
     Dosage: 40 MG, HS
     Route: 048
     Dates: start: 202011, end: 202101
  2. LAMOTRIGINE. [Concomitant]
     Active Substance: LAMOTRIGINE
     Indication: BIPOLAR DISORDER
     Dosage: 200 MG, BID
     Route: 048
  3. LATUDA [Suspect]
     Active Substance: LURASIDONE HYDROCHLORIDE
     Dosage: 40 MG, HS (GENERIC FROM CANADA)
     Route: 048
     Dates: start: 202101, end: 202102
  4. CARVEDILOL. [Concomitant]
     Active Substance: CARVEDILOL
     Indication: BLOOD PRESSURE ABNORMAL
     Dosage: 37.5 MG, BID
     Route: 048
  5. AMLODIPINE [Concomitant]
     Active Substance: AMLODIPINE BESYLATE
     Indication: BLOOD PRESSURE ABNORMAL
     Dosage: 10 MG, QD
     Route: 048
  6. LATUDA [Suspect]
     Active Substance: LURASIDONE HYDROCHLORIDE
     Indication: BIPOLAR DISORDER
     Dosage: 40 MG, HS
     Route: 048
     Dates: start: 202102

REACTIONS (6)
  - Emotional disorder [Unknown]
  - Crying [Unknown]
  - Abdominal distension [Unknown]
  - Feeling abnormal [Unknown]
  - Malaise [Unknown]
  - Nausea [Unknown]
